FAERS Safety Report 9683849 (Version 2)
Quarter: 2013Q4

REPORT INFORMATION
  Report Type: Spontaneous
  Country: JP (occurrence: JP)
  Receive Date: 20131112
  Receipt Date: 20131213
  Transmission Date: 20140711
  Serious: Yes (Other)
  Sender: FDA-Public Use
  Company Number: JP-BAXTER-2013BAX044444

PATIENT
  Age: 76 Year
  Sex: 0

DRUGS (3)
  1. SUPRANE [Suspect]
     Indication: MAINTENANCE OF ANAESTHESIA
     Route: 055
  2. REMIFENTANIL HYDROCHLORIDE [Suspect]
     Indication: MAINTENANCE OF ANAESTHESIA
     Route: 042
  3. FENTANYL CITRATE [Suspect]
     Indication: MAINTENANCE OF ANAESTHESIA
     Route: 042

REACTIONS (1)
  - Post procedural complication [Recovered/Resolved]
